FAERS Safety Report 10578040 (Version 2)
Quarter: 2014Q4

REPORT INFORMATION
  Report Type: Spontaneous
  Country: IT (occurrence: IT)
  Receive Date: 20141112
  Receipt Date: 20141112
  Transmission Date: 20150529
  Serious: Yes (Other)
  Sender: FDA-Public Use
  Company Number: IT-BRISTOL-MYERS SQUIBB COMPANY-21551072

PATIENT
  Age: 50 Year
  Sex: Female

DRUGS (4)
  1. PREDNISONE. [Concomitant]
     Active Substance: PREDNISONE
  2. ARAVA [Concomitant]
     Active Substance: LEFLUNOMIDE
  3. ORENCIA [Suspect]
     Active Substance: ABATACEPT
     Indication: RHEUMATOID ARTHRITIS
     Dosage: LAST DOSE 30-JUN-2014
     Route: 058
     Dates: start: 20140205
  4. DIBASE [Concomitant]
     Active Substance: CHOLECALCIFEROL

REACTIONS (1)
  - Panic disorder with agoraphobia [Recovering/Resolving]
